FAERS Safety Report 9004549 (Version 1)
Quarter: 2013Q1

REPORT INFORMATION
  Report Type: Spontaneous
  Country: US (occurrence: None)
  Receive Date: 20130103
  Receipt Date: 20130103
  Transmission Date: 20140127
  Serious: Yes (Life-Threatening)
  Sender: FDA-Public Use
  Company Number: None

PATIENT
  Sex: Female
  Weight: 158.76 kg

DRUGS (2)
  1. MYRBETRIQ [Suspect]
     Indication: URGE INCONTINENCE
     Dosage: ONE DAILY PO
     Route: 048
     Dates: start: 20121207, end: 20121207
  2. MYRBETRIQ [Suspect]
     Indication: STRESS URINARY INCONTINENCE
     Dosage: ONE DAILY PO
     Route: 048
     Dates: start: 20121207, end: 20121207

REACTIONS (2)
  - Diarrhoea [None]
  - Orthostatic hypertension [None]
